FAERS Safety Report 5124352-2 (Version None)
Quarter: 2006Q3

REPORT INFORMATION
  Report Type: 
  Country: None (occurrence: None)
  Receive Date: 20060816
  Receipt Date: 20060414
  Transmission Date: 20061208
  Serious: No
  Sender: FDA-Public Use
  Company Number: US200604002543

PATIENT
  Sex: Male

DRUGS (4)
  1. CIALIS [Suspect]
     Indication: ERECTILE DYSFUNCTION
     Dosage: 10 MG
  2. WELCHOL [Concomitant]
  3. VITAMIN E [Concomitant]
  4. GARLIC (GARLIC) [Concomitant]

REACTIONS (1)
  - DRUG INEFFECTIVE [None]
